FAERS Safety Report 9882463 (Version 3)
Quarter: 2014Q1

REPORT INFORMATION
  Report Type: Spontaneous
  Country: TR (occurrence: TR)
  Receive Date: 20140207
  Receipt Date: 20140227
  Transmission Date: 20141002
  Serious: No
  Sender: FDA-Public Use
  Company Number: TR-PFIZER INC-2014023681

PATIENT
  Age: 70 Year
  Sex: Female
  Weight: 85 kg

DRUGS (6)
  1. EFEXOR XR [Suspect]
     Indication: DEPRESSION
     Dosage: 37.5 MG, 1X/DAY
     Dates: start: 201401, end: 20140118
  2. EFEXOR XR [Suspect]
     Indication: ANXIETY DISORDER
  3. CRESTOR [Concomitant]
     Dosage: 20 MG, 1X/DAY
  4. MONODUR [Concomitant]
     Dosage: 30 MG, HALF DOSE DAILY
  5. CILAZAPRIL [Concomitant]
     Dosage: 1 MG, UNK
  6. DILATREND [Concomitant]
     Dosage: 12.5 MG, HALF DOSE AT MORNINGS HALF DOSE AT NIGHTS

REACTIONS (10)
  - Nausea [Recovered/Resolved]
  - Vomiting [Recovered/Resolved]
  - Vertigo [Recovered/Resolved]
  - Tremor [Recovered/Resolved]
  - Abdominal pain upper [Recovered/Resolved]
  - Asthenia [Recovered/Resolved]
  - Gait disturbance [Recovered/Resolved]
  - Dyspnoea [Recovered/Resolved]
  - Palpitations [Recovered/Resolved]
  - Feeling abnormal [Recovered/Resolved]
